FAERS Safety Report 14174003 (Version 1)
Quarter: 2017Q4

REPORT INFORMATION
  Report Type: Spontaneous
  Country: FR (occurrence: FR)
  Receive Date: 20171109
  Receipt Date: 20171109
  Transmission Date: 20180321
  Serious: Yes (Hospitalization)
  Sender: FDA-Public Use
  Company Number: FR-SA-2017SA215113

PATIENT
  Age: 81 Year
  Sex: Male

DRUGS (1)
  1. IMMUCYST [Suspect]
     Active Substance: BACILLUS CALMETTE-GUERIN SUBSTRAIN CONNAUGHT LIVE ANTIGEN
     Indication: BLADDER CANCER
     Route: 043
     Dates: start: 201704, end: 201705

REACTIONS (2)
  - Polyarthritis [Not Recovered/Not Resolved]
  - Disseminated Bacillus Calmette-Guerin infection [Not Recovered/Not Resolved]

NARRATIVE: CASE EVENT DATE: 20170515
